FAERS Safety Report 9266810 (Version 1)
Quarter: 2013Q2

REPORT INFORMATION
  Report Type: Spontaneous
  Country: US (occurrence: US)
  Receive Date: 20130502
  Receipt Date: 20130502
  Transmission Date: 20140414
  Serious: Yes (Hospitalization, Other)
  Sender: FDA-Public Use
  Company Number: US-BAYER-2013-051740

PATIENT
  Sex: Female

DRUGS (1)
  1. YASMIN [Suspect]
     Dosage: 3MG/0.03MG
     Route: 048

REACTIONS (10)
  - Depression [None]
  - Bulimia nervosa [None]
  - Weight decreased [None]
  - Fall [None]
  - Haemorrhage [None]
  - Thrombosis [None]
  - Myocardial infarction [None]
  - Dyspnoea [None]
  - Cardiac disorder [Not Recovered/Not Resolved]
  - Renal disorder [Not Recovered/Not Resolved]
